FAERS Safety Report 10478963 (Version 2)
Quarter: 2014Q3

REPORT INFORMATION
  Report Type: Spontaneous
  Country: PL (occurrence: PL)
  Receive Date: 20140926
  Receipt Date: 20140926
  Transmission Date: 20150326
  Serious: Yes (Other)
  Sender: FDA-Public Use
  Company Number: PL-BAXTER-2014BAX050168

PATIENT
  Age: 26 Year
  Sex: Male

DRUGS (2)
  1. FUROSEMIDE. [Suspect]
     Active Substance: FUROSEMIDE
     Indication: PRODUCT USED FOR UNKNOWN INDICATION
     Route: 065
  2. MANNITOL 15% BAXTER [Suspect]
     Active Substance: MANNITOL
     Indication: PRODUCT USED FOR UNKNOWN INDICATION
     Route: 065

REACTIONS (15)
  - Hot flush [None]
  - Anaemia [None]
  - Sleep disorder [None]
  - Arthralgia [None]
  - Mood altered [None]
  - Mood swings [None]
  - Myalgia [None]
  - Asthenia [None]
  - Hypogonadism [None]
  - Hypopituitarism [Recovering/Resolving]
  - Memory impairment [None]
  - Anhedonia [None]
  - Hyperhidrosis [None]
  - Erythema [None]
  - Disturbance in attention [None]
